FAERS Safety Report 10306246 (Version 2)
Quarter: 2015Q2

REPORT INFORMATION
  Report Type: Report from Study
  Country: DE (occurrence: DE)
  Receive Date: 20140715
  Receipt Date: 20150529
  Transmission Date: 20150821
  Serious: No
  Sender: FDA-Public Use
  Company Number: PHHY2014DE083258

PATIENT
  Sex: Female

DRUGS (3)
  1. AMN107 [Suspect]
     Active Substance: NILOTINIB
     Indication: CHRONIC MYELOID LEUKAEMIA
     Dosage: 600 MG, PER DAY
     Route: 048
     Dates: start: 20130531
  2. L-THYROXIN [Concomitant]
     Active Substance: LEVOTHYROXINE SODIUM
     Dosage: UNK (75)
     Route: 065
     Dates: start: 20140210
  3. L-THYROXIN [Concomitant]
     Active Substance: LEVOTHYROXINE SODIUM
     Indication: PRODUCT USED FOR UNKNOWN INDICATION
     Dosage: UNK (100)
     Route: 065
     Dates: start: 20131112, end: 20140210

REACTIONS (4)
  - Nervousness [Not Recovered/Not Resolved]
  - Irritability [Not Recovered/Not Resolved]
  - Dizziness [Recovered/Resolved]
  - Hot flush [Recovered/Resolved]

NARRATIVE: CASE EVENT DATE: 20140210
